FAERS Safety Report 8575189-3 (Version None)
Quarter: 2012Q3

REPORT INFORMATION
  Report Type: 
  Country: None (occurrence: None)
  Receive Date: 20120807
  Receipt Date: 20120725
  Transmission Date: 20120928
  Serious: Yes (Hospitalization, Other)
  Sender: FDA-Public Use
  Company Number: SV-ELI_LILLY_AND_COMPANY-SV201207008156

PATIENT
  Age: 19 Year
  Sex: Female

DRUGS (3)
  1. CLONAZEPAM [Concomitant]
     Indication: DELUSION
     Dosage: 6 MG, QD
     Dates: start: 20120627, end: 20120629
  2. OLANZAPINE [Suspect]
     Indication: DELUSION
     Dosage: 20 MG, QD
     Route: 030
     Dates: start: 20120627, end: 20120629
  3. OLANZAPINE [Suspect]
     Dosage: 20 MG, QD
     Route: 048
     Dates: start: 20120630, end: 20120718

REACTIONS (3)
  - WEIGHT INCREASED [None]
  - HEPATIC STEATOSIS [None]
  - CHOLELITHIASIS [None]
